FAERS Safety Report 14818297 (Version 2)
Quarter: 2018Q2

REPORT INFORMATION
  Report Type: Report from Study
  Country: None (occurrence: ES)
  Receive Date: 20180427
  Receipt Date: 20180529
  Transmission Date: 20180711
  Serious: Yes (Death, Hospitalization)
  Sender: FDA-Public Use
  Company Number: ES-ABBVIE-18K-144-2334988-00

PATIENT
  Age: 86 Year
  Sex: Female
  Weight: 49 kg

DRUGS (1)
  1. DUODOPA [Suspect]
     Active Substance: CARBIDOPA\LEVODOPA
     Indication: PARKINSON^S DISEASE
     Route: 050
     Dates: start: 20130708, end: 201804

REACTIONS (6)
  - Anuria [Fatal]
  - Depressed level of consciousness [Fatal]
  - Chronic kidney disease [Not Recovered/Not Resolved]
  - Asthenia [Not Recovered/Not Resolved]
  - Dehydration [Recovering/Resolving]
  - Gastroenteritis [Fatal]

NARRATIVE: CASE EVENT DATE: 20180419
